FAERS Safety Report 7565278-4 (Version None)
Quarter: 2011Q2

REPORT INFORMATION
  Report Type: 
  Country: None (occurrence: None)
  Receive Date: 20110622
  Receipt Date: 20110616
  Transmission Date: 20111010
  Serious: Yes (Other)
  Sender: FDA-Public Use
  Company Number: US-AMGEN-USASP2011031013

PATIENT
  Age: 61 Year
  Sex: Male

DRUGS (9)
  1. TESTOSTERONE [Concomitant]
  2. AMLODIPINE [Concomitant]
  3. CELLCEPT [Concomitant]
  4. LABETALOL HCL [Concomitant]
  5. PROLIA [Suspect]
     Indication: OSTEOPOROSIS
     Dates: start: 20110526
  6. PREDNISONE [Concomitant]
  7. DEPAKOTE [Concomitant]
  8. PROGRAF [Concomitant]
  9. CITRICAL                           /00108001/ [Concomitant]

REACTIONS (3)
  - PARAPLEGIA [None]
  - GAIT DISTURBANCE [None]
  - ASTHENIA [None]
